FAERS Safety Report 16860774 (Version 1)
Quarter: 2019Q3

REPORT INFORMATION
  Report Type: Spontaneous
  Country: US (occurrence: US)
  Receive Date: 20190805
  Receipt Date: 20190805
  Transmission Date: 20191005
  Serious: Yes (Other)
  Sender: FDA-Public Use
  Company Number: None

PATIENT
  Age: 42 Year
  Sex: Female

DRUGS (1)
  1. GLATIRAMER 40 MG/ML [Suspect]
     Active Substance: GLATIRAMER
     Indication: MULTIPLE SCLEROSIS
     Route: 058
     Dates: start: 20190619, end: 20190731

REACTIONS (2)
  - Injection site swelling [None]
  - Injection site pain [None]

NARRATIVE: CASE EVENT DATE: 20190805
